FAERS Safety Report 12703796 (Version 1)
Quarter: 2016Q3

REPORT INFORMATION
  Report Type: Spontaneous
  Country: NL (occurrence: NL)
  Receive Date: 20160831
  Receipt Date: 20160831
  Transmission Date: 20161109
  Serious: Yes (Other)
  Sender: FDA-Public Use
  Company Number: NL-TEVA-689073ROM

PATIENT
  Age: 81 Year
  Sex: Female
  Weight: 65 kg

DRUGS (1)
  1. FOLIUMZUUR TABLET 0.5 MG [Suspect]
     Active Substance: FOLIC ACID
     Indication: ANAEMIA
     Dosage: .5 MILLIGRAM DAILY;
     Route: 048
     Dates: start: 20160716

REACTIONS (2)
  - Skin burning sensation [Unknown]
  - Dermatitis bullous [Unknown]

NARRATIVE: CASE EVENT DATE: 20160805
